FAERS Safety Report 22015675 (Version 1)
Quarter: 2023Q1

REPORT INFORMATION
  Report Type: Spontaneous
  Country: CN (occurrence: CN)
  Receive Date: 20230221
  Receipt Date: 20230221
  Transmission Date: 20230417
  Serious: Yes (Hospitalization)
  Sender: FDA-Public Use
  Company Number: CN-GLAXOSMITHKLINE-CN2023APC023460

PATIENT

DRUGS (3)
  1. LAMICTAL [Suspect]
     Active Substance: LAMOTRIGINE
     Indication: Status epilepticus
     Dosage: 100 MG, BID
     Route: 048
     Dates: start: 20230120, end: 20230205
  2. CLONAZEPAM [Suspect]
     Active Substance: CLONAZEPAM
     Indication: Status epilepticus
     Dosage: 0.5 MG, BID
     Route: 048
     Dates: start: 20230201, end: 20230205
  3. PHENOBARBITAL SODIUM [Suspect]
     Active Substance: PHENOBARBITAL SODIUM
     Indication: Status epilepticus
     Dosage: 0.1 G, QD
     Route: 030
     Dates: start: 20230201, end: 20230203

REACTIONS (4)
  - Drug eruption [Recovering/Resolving]
  - Oral mucosa erosion [Recovering/Resolving]
  - Mouth ulceration [Recovering/Resolving]
  - Erythema [Recovering/Resolving]

NARRATIVE: CASE EVENT DATE: 20230204
